FAERS Safety Report 11383039 (Version 3)
Quarter: 2015Q3

REPORT INFORMATION
  Report Type: Spontaneous
  Country: US (occurrence: US)
  Receive Date: 20150814
  Receipt Date: 20150911
  Transmission Date: 20151125
  Serious: Yes (Hospitalization)
  Sender: FDA-Public Use
  Company Number: US-PFIZER INC-2015268308

PATIENT
  Age: 53 Year
  Sex: Female
  Weight: 59 kg

DRUGS (8)
  1. NORVASC [Concomitant]
     Active Substance: AMLODIPINE BESYLATE
     Indication: HYPERTENSION
     Dosage: 10 MG, 1X/DAY
  2. REQUIP [Concomitant]
     Active Substance: ROPINIROLE HYDROCHLORIDE
     Dosage: 2 MG, 2X/DAY
  3. KLONOPIN [Concomitant]
     Active Substance: CLONAZEPAM
     Dosage: ? TO 1 TAB 3 TIMES A DAY AS NEEDED
  4. COZAAR [Concomitant]
     Active Substance: LOSARTAN POTASSIUM
     Indication: HYPERTENSION
     Dosage: 100 MG, 1X/DAY
  5. ROBAXIN [Concomitant]
     Active Substance: METHOCARBAMOL
     Dosage: 750 MG, 2X/DAY
  6. LYRICA [Suspect]
     Active Substance: PREGABALIN
     Indication: RHEUMATOID ARTHRITIS
     Dosage: 75 MG, 3X/DAY
     Dates: start: 201507
  7. LIPITOR [Concomitant]
     Active Substance: ATORVASTATIN CALCIUM
     Indication: BLOOD CHOLESTEROL INCREASED
     Dosage: 20 MG, 1X/DAY (AT BED TIME)
  8. NAPROSYN [Concomitant]
     Active Substance: NAPROXEN
     Dosage: 500 MG, 2X/DAY

REACTIONS (7)
  - Amnesia [Unknown]
  - Product use issue [Unknown]
  - Confusional state [Recovered/Resolved]
  - Aggression [Unknown]
  - Suicidal ideation [Unknown]
  - Gait disturbance [Recovered/Resolved]
  - Speech disorder [Unknown]

NARRATIVE: CASE EVENT DATE: 2015
